FAERS Safety Report 11582599 (Version 1)
Quarter: 2015Q4

REPORT INFORMATION
  Report Type: Other
  Country: DE (occurrence: DE)
  Receive Date: 20151001
  Receipt Date: 20151001
  Transmission Date: 20160304
  Serious: Yes (Disabling, Other)
  Sender: FDA-Public Use
  Company Number: DE-MACLEODS PHARMACEUTICALS US LTD-MAC2015002021

PATIENT

DRUGS (1)
  1. LEVOFLOXACIN. [Suspect]
     Active Substance: LEVOFLOXACIN
     Indication: SINUSITIS
     Dosage: 500 MG, UNK
     Route: 048
     Dates: start: 20140505

REACTIONS (19)
  - Muscle twitching [Unknown]
  - Hand-eye coordination impaired [Unknown]
  - Balance disorder [Unknown]
  - Multiple sclerosis relapse [Unknown]
  - Asthenia [Unknown]
  - Muscle spasms [Unknown]
  - Multiple sclerosis [Unknown]
  - Eye pain [Unknown]
  - Hypoaesthesia [Unknown]
  - Ataxia [Unknown]
  - Coordination abnormal [Unknown]
  - Tendon disorder [Recovered/Resolved]
  - Tendon pain [Unknown]
  - Dizziness [Unknown]
  - Visual impairment [Unknown]
  - Hypokinesia [Unknown]
  - Muscle spasticity [Unknown]
  - Paraesthesia [Unknown]
  - Joint crepitation [Unknown]

NARRATIVE: CASE EVENT DATE: 20140505
